FAERS Safety Report 7076989-1 (Version None)
Quarter: 2010Q4

REPORT INFORMATION
  Report Type: 
  Country: None (occurrence: None)
  Receive Date: 20101101
  Receipt Date: 20101026
  Transmission Date: 20110411
  Serious: Yes (Death)
  Sender: FDA-Public Use
  Company Number: US-GILEAD-2010-0032611

PATIENT
  Sex: Female
  Weight: 83.082 kg

DRUGS (13)
  1. LETAIRIS [Suspect]
     Indication: PULMONARY ARTERIAL HYPERTENSION
     Route: 048
     Dates: start: 20070716
  2. REVATIO [Concomitant]
  3. OXYGEN [Concomitant]
  4. ASPIRIN [Concomitant]
  5. LASIX [Concomitant]
  6. SPIRONOLACTONE [Concomitant]
  7. METOLAZONE [Concomitant]
  8. COREG [Concomitant]
  9. FLUOXETINE [Concomitant]
  10. METHYLDOPA [Concomitant]
  11. PLAQUENIL [Concomitant]
  12. CLONAZEPAM [Concomitant]
  13. POTASSIUM CHLORIDE [Concomitant]

REACTIONS (1)
  - DEATH [None]
